FAERS Safety Report 6643222-1 (Version None)
Quarter: 2010Q1

REPORT INFORMATION
  Report Type: 
  Country: None (occurrence: None)
  Receive Date: 20100319
  Receipt Date: 20100317
  Transmission Date: 20100710
  Serious: Yes (Death, Hospitalization, Other)
  Sender: FDA-Public Use
  Company Number: PHHY2010BE05892

PATIENT
  Sex: Male

DRUGS (19)
  1. AFINITOR [Suspect]
     Indication: RENAL CELL CARCINOMA
     Dosage: 10 MG, DAILY
     Route: 048
     Dates: start: 20091217, end: 20100125
  2. FLUCONAZOLE [Concomitant]
     Dosage: 200 MG, UNK
     Route: 042
  3. SOLU-MEDROL [Concomitant]
     Dosage: 40 MG, TID
     Dates: start: 20091201
  4. MORPHINE [Concomitant]
     Dosage: 10 MG, UNK
     Route: 058
  5. KABIVEN [Concomitant]
     Dosage: 9 GR N/2400
  6. ADDAMEL [Concomitant]
  7. SOLUVIT [Concomitant]
  8. VITALIPID [Concomitant]
  9. MORPHINE HYDROCHLORIDE [Concomitant]
     Dosage: 40 MG, UNK
     Dates: start: 20091201
  10. FRAXIPARINE [Concomitant]
     Dosage: 0.3 ML, UNK
     Route: 058
  11. IPRATROPIUM [Concomitant]
     Dosage: 500 UG, UNK
  12. FENOTEROL [Concomitant]
     Dosage: 1250 UG, UNK
  13. AVELOX [Concomitant]
     Dosage: 400 MG, UNK
     Route: 042
     Dates: start: 20091201
  14. CONTRAMAL [Concomitant]
     Dosage: 10 ML, UNK
     Dates: start: 20091201
  15. HIBITANE [Concomitant]
     Dosage: UNK
     Dates: start: 20091201
  16. MOVICOL [Concomitant]
  17. BORAX GLISERIN [Concomitant]
  18. DURAGESIC-100 [Concomitant]
     Dosage: 25 UG/HR, UNK
  19. NEXAVAR [Concomitant]

REACTIONS (15)
  - BACTERIAL INFECTION [None]
  - BRONCHOPNEUMONIA [None]
  - COUGH [None]
  - DYSPNOEA [None]
  - FATIGUE [None]
  - GAMMA-GLUTAMYLTRANSFERASE INCREASED [None]
  - INTERSTITIAL LUNG DISEASE [None]
  - LUNG DISORDER [None]
  - LYMPHADENOPATHY [None]
  - METASTASES TO ADRENALS [None]
  - METASTASES TO BONE [None]
  - PULMONARY FIBROSIS [None]
  - PYREXIA [None]
  - TREATMENT NONCOMPLIANCE [None]
  - WHEEZING [None]
